FAERS Safety Report 22057983 (Version 2)
Quarter: 2023Q1

REPORT INFORMATION
  Report Type: Other
  Country: TH (occurrence: TH)
  Receive Date: 20230303
  Receipt Date: 20230307
  Transmission Date: 20230417
  Serious: Yes (Death, Other)
  Sender: FDA-Public Use
  Company Number: TH-BoehringerIngelheim-2023-BI-221746

PATIENT
  Sex: Female

DRUGS (1)
  1. ALTEPLASE [Suspect]
     Active Substance: ALTEPLASE
     Indication: Ischaemic stroke
     Route: 042

REACTIONS (2)
  - Death [Fatal]
  - Cerebral haemorrhage [Unknown]
